FAERS Safety Report 20984859 (Version 1)
Quarter: 2022Q2

REPORT INFORMATION
  Report Type: Report from Study
  Country: SA (occurrence: SA)
  Receive Date: 20220621
  Receipt Date: 20220621
  Transmission Date: 20220721
  Serious: Yes (Other)
  Sender: FDA-Public Use
  Company Number: SA-CELLTRION INC.-2019SA026210

PATIENT

DRUGS (11)
  1. INFLIXIMAB [Suspect]
     Active Substance: INFLIXIMAB
     Indication: Crohn^s disease
     Dosage: 430 MG (5 MG/KG), 3HRS FOR ONE DAY EVERY 8 WEEKS
     Route: 041
     Dates: start: 20181031, end: 20181031
  2. INFLIXIMAB [Suspect]
     Active Substance: INFLIXIMAB
     Dosage: 440 MG, 3HRS FOR ONE DAY EVERY 8 WEEKS
     Route: 041
     Dates: start: 20181213, end: 20181213
  3. INFLIXIMAB [Suspect]
     Active Substance: INFLIXIMAB
     Dosage: 440 MG, 3HRS FOR ONE DAY EVERY 8 WEEKS
     Route: 041
     Dates: start: 20190213, end: 20190213
  4. INFLIXIMAB [Suspect]
     Active Substance: INFLIXIMAB
     Dosage: 450 MG, 3HRS FOR ONE DAY EVERY 8 WEEKS
     Route: 041
     Dates: start: 20190612, end: 20190612
  5. INFLIXIMAB [Suspect]
     Active Substance: INFLIXIMAB
     Dosage: 450 MG, 3HRS FOR ONE DAY EVERY 8 WEEKS
     Route: 041
     Dates: start: 20190723, end: 20190723
  6. INFLIXIMAB [Suspect]
     Active Substance: INFLIXIMAB
     Dosage: 446.5 MG, 3HRS FOR ONE DAY EVERY 8 WEEKS
     Route: 041
     Dates: start: 20190904, end: 20190904
  7. INFLIXIMAB [Suspect]
     Active Substance: INFLIXIMAB
     Dosage: 446.5 MG, 3HRS FOR ONE DAY EVERY 8 WEEKS
     Route: 041
     Dates: start: 20191016, end: 20191016
  8. HYDROCORTISONE SODIUM SUCCINATE [Concomitant]
     Active Substance: HYDROCORTISONE SODIUM SUCCINATE
     Indication: Premedication
     Dosage: 100 MG
     Route: 042
     Dates: start: 20181017, end: 20181017
  9. HYDROCORTISONE SODIUM SUCCINATE [Concomitant]
     Active Substance: HYDROCORTISONE SODIUM SUCCINATE
     Dosage: 100 MG
     Route: 042
     Dates: start: 20191016, end: 20191016
  10. MESALAMINE [Concomitant]
     Active Substance: MESALAMINE
     Indication: Antiinflammatory therapy
     Dosage: 4000 MG (2000 MG,2 IN 1 D)
     Route: 048
     Dates: start: 20181213, end: 20190416
  11. IMURAN [Concomitant]
     Active Substance: AZATHIOPRINE
     Indication: Immunosuppression
     Dosage: 50 MG, IN THE MORNING
     Route: 048
     Dates: start: 20180913

REACTIONS (6)
  - Haematochezia [Recovered/Resolved]
  - Abdominal pain [Recovered/Resolved]
  - Rash papular [Recovered/Resolved]
  - Overdose [Unknown]
  - Underdose [Unknown]
  - Off label use [Unknown]

NARRATIVE: CASE EVENT DATE: 20190612
